FAERS Safety Report 6975306-2 (Version None)
Quarter: 2010Q3

REPORT INFORMATION
  Report Type: 
  Country: None (occurrence: None)
  Receive Date: 20100910
  Receipt Date: 20090304
  Transmission Date: 20110219
  Serious: No
  Sender: FDA-Public Use
  Company Number: US-WYE-H08471309

PATIENT
  Sex: Female
  Weight: 70.37 kg

DRUGS (2)
  1. PRISTIQ [Suspect]
     Indication: OBSESSIVE-COMPULSIVE DISORDER
     Dates: start: 20090226
  2. LUNESTA [Concomitant]

REACTIONS (2)
  - MEDICATION RESIDUE [None]
  - NAUSEA [None]
